FAERS Safety Report 10667104 (Version 1)
Quarter: 2014Q4

REPORT INFORMATION
  Report Type: Spontaneous
  Country: None (occurrence: None)
  Receive Date: 20141219
  Receipt Date: 20141219
  Transmission Date: 20150529
  Serious: No
  Sender: FDA-Public Use
  Company Number: None

PATIENT
  Age: 64 Year
  Sex: Male
  Weight: 54.43 kg

DRUGS (3)
  1. TEMAZEPAM. [Suspect]
     Active Substance: TEMAZEPAM
     Indication: NEUROPATHY PERIPHERAL
     Dosage: 1 PILL AT NIGHT ?! ONCE DAILY TAKEN BY MOUTH
     Route: 048
     Dates: start: 20141215, end: 20141217
  2. TEMAZEPAM. [Suspect]
     Active Substance: TEMAZEPAM
     Indication: DRUG DEPENDENCE
     Dosage: 1 PILL AT NIGHT ?! ONCE DAILY TAKEN BY MOUTH
     Route: 048
     Dates: start: 20141215, end: 20141217
  3. TEMAZEPAM. [Suspect]
     Active Substance: TEMAZEPAM
     Indication: INSOMNIA
     Dosage: 1 PILL AT NIGHT ?! ONCE DAILY TAKEN BY MOUTH
     Route: 048
     Dates: start: 20141215, end: 20141217

REACTIONS (7)
  - Drug ineffective [None]
  - Insomnia [None]
  - Toxicity to various agents [None]
  - Muscle spasms [None]
  - Adverse drug reaction [None]
  - Somnolence [None]
  - Alcohol use [None]

NARRATIVE: CASE EVENT DATE: 20141216
